FAERS Safety Report 14138514 (Version 1)
Quarter: 2017Q4

REPORT INFORMATION
  Report Type: Spontaneous
  Country: US (occurrence: US)
  Receive Date: 20171027
  Receipt Date: 20171027
  Transmission Date: 20180321
  Serious: No
  Sender: FDA-Public Use
  Company Number: US-ROCHE-1897776

PATIENT
  Sex: Female
  Weight: 44.49 kg

DRUGS (1)
  1. TAMIFLU [Suspect]
     Active Substance: OSELTAMIVIR PHOSPHATE
     Indication: INFLUENZA
     Dosage: TOTAL 30 ML GIVEN IN TWO DAYS
     Route: 048
     Dates: start: 20170206, end: 20170211

REACTIONS (5)
  - Eye pain [Not Recovered/Not Resolved]
  - Lethargy [Recovered/Resolved]
  - Photosensitivity reaction [Not Recovered/Not Resolved]
  - Vomiting [Recovered/Resolved]
  - Cough [Recovered/Resolved]
